FAERS Safety Report 8253538-3 (Version None)
Quarter: 2012Q2

REPORT INFORMATION
  Report Type: 
  Country: None (occurrence: None)
  Receive Date: 20120402
  Receipt Date: 20120302
  Transmission Date: 20120825
  Serious: No
  Sender: FDA-Public Use
  Company Number: US-AMGEN-USASP2012014141

PATIENT
  Age: 56 Year
  Sex: Male

DRUGS (3)
  1. MELOXICAM [Concomitant]
     Indication: PSORIATIC ARTHROPATHY
     Dosage: UNK
  2. ENBREL [Suspect]
     Indication: PSORIATIC ARTHROPATHY
     Dosage: UNK
  3. HUMIRA [Concomitant]
     Indication: PSORIATIC ARTHROPATHY
     Dosage: 40 MG, Q2WK
     Route: 058
     Dates: start: 20100801, end: 20111220

REACTIONS (3)
  - HEADACHE [None]
  - PSORIATIC ARTHROPATHY [None]
  - BACK PAIN [None]
